FAERS Safety Report 21832209 (Version 1)
Quarter: 2023Q1

REPORT INFORMATION
  Report Type: Report from Study
  Country: FR (occurrence: FR)
  Receive Date: 20230106
  Receipt Date: 20230106
  Transmission Date: 20230417
  Serious: Yes (Other)
  Sender: FDA-Public Use
  Company Number: FR-009507513-2301FRA000868

PATIENT
  Age: 81 Year
  Sex: Male

DRUGS (1)
  1. PEMBROLIZUMAB [Suspect]
     Active Substance: PEMBROLIZUMAB
     Indication: Non-small cell lung cancer metastatic
     Dosage: 2 MG/KG OR 200 MG EVERY 3 WEEKS
     Route: 042

REACTIONS (3)
  - Immune-mediated gastritis [Unknown]
  - Immune-mediated arthritis [Unknown]
  - Immune-mediated thyroiditis [Unknown]
